FAERS Safety Report 15683558 (Version 1)
Quarter: 2018Q4

REPORT INFORMATION
  Report Type: Spontaneous
  Country: CA (occurrence: CA)
  Receive Date: 20181204
  Receipt Date: 20181204
  Transmission Date: 20190205
  Serious: Yes (Hospitalization, Other)
  Sender: FDA-Public Use
  Company Number: CA-TEVA-2018-CA-982192

PATIENT
  Age: 49 Year
  Sex: Male

DRUGS (2)
  1. MORPHINE SULFATE. [Suspect]
     Active Substance: MORPHINE SULFATE
     Indication: PRODUCT USED FOR UNKNOWN INDICATION
     Route: 065
  2. DEXPANTHENOL/ERGOCALCIFEROL/FOLICACID/NICOTINAMIDE/RIBOFLAVIN/THIAMINE [Concomitant]
     Route: 065

REACTIONS (8)
  - Weight decreased [Unknown]
  - Diarrhoea [Unknown]
  - Cellulitis [Unknown]
  - Dizziness [Unknown]
  - Abdominal pain [Unknown]
  - Crohn^s disease [Unknown]
  - Fatigue [Unknown]
  - Fistula [Unknown]
